FAERS Safety Report 11310518 (Version 3)
Quarter: 2016Q4

REPORT INFORMATION
  Report Type: Report from Study
  Country: US (occurrence: US)
  Receive Date: 20150724
  Receipt Date: 20161116
  Transmission Date: 20170206
  Serious: Yes (Other)
  Sender: FDA-Public Use
  Company Number: US-ASTRAZENECA-2015SE71875

PATIENT
  Age: 22701 Day
  Sex: Female
  Weight: 79.3 kg

DRUGS (16)
  1. ALBUTEROL. [Concomitant]
     Active Substance: ALBUTEROL
     Dosage: 180 MICROGRAM
     Route: 055
  2. REGLAN [Concomitant]
     Active Substance: METOCLOPRAMIDE HYDROCHLORIDE
     Dosage: 10 MG
  3. ZOFRAN [Concomitant]
     Active Substance: ONDANSETRON HYDROCHLORIDE
     Dosage: 4 MG
  4. LOMOTIL [Concomitant]
     Active Substance: ATROPINE SULFATE\DIPHENOXYLATE HYDROCHLORIDE
     Dosage: 1 DF
  5. ALBUTEROL. [Concomitant]
     Active Substance: ALBUTEROL
     Dosage: 90 MICROGRAM
     Route: 055
     Dates: start: 2006, end: 20150715
  6. SILVADENE [Concomitant]
     Active Substance: SILVER SULFADIAZINE
  7. DULERA [Concomitant]
     Active Substance: FORMOTEROL FUMARATE DIHYDRATE\MOMETASONE FUROATE
  8. MS CONTIN [Concomitant]
     Active Substance: MORPHINE SULFATE
  9. NORCO [Concomitant]
     Active Substance: ACETAMINOPHEN\HYDROCODONE BITARTRATE
  10. ACLIDINIUM BROMIDE [Suspect]
     Active Substance: ACLIDINIUM BROMIDE
     Indication: CHRONIC OBSTRUCTIVE PULMONARY DISEASE
     Route: 055
     Dates: start: 20141112, end: 20150528
  11. TYLENOL [Concomitant]
     Active Substance: ACETAMINOPHEN
     Dosage: 325 MG
     Route: 048
     Dates: start: 2006
  12. LOPERAMIDE [Concomitant]
     Active Substance: LOPERAMIDE
     Dosage: 8-16 MG 1 6 / HOUR
  13. ACLIDINIUM BROMIDE [Suspect]
     Active Substance: ACLIDINIUM BROMIDE
     Indication: CHRONIC OBSTRUCTIVE PULMONARY DISEASE
     Route: 055
     Dates: start: 20150310, end: 20150328
  14. COLACE [Concomitant]
     Active Substance: DOCUSATE SODIUM
     Dosage: 100 MG
  15. ASA [Concomitant]
     Active Substance: ASPIRIN
  16. SPIRIVA [Concomitant]
     Active Substance: TIOTROPIUM BROMIDE MONOHYDRATE

REACTIONS (1)
  - Anal cancer [Not Recovered/Not Resolved]

NARRATIVE: CASE EVENT DATE: 20150304
